FAERS Safety Report 6587597-0 (Version None)
Quarter: 2010Q1

REPORT INFORMATION
  Report Type: 
  Country: None (occurrence: None)
  Receive Date: 20100218
  Receipt Date: 20100205
  Transmission Date: 20100710
  Serious: Yes (Death)
  Sender: FDA-Public Use
  Company Number: FR-RANBAXY-2010RR-30962

PATIENT
  Age: 34 Year
  Sex: Female

DRUGS (2)
  1. MINOCYCLINE HCL [Suspect]
     Indication: GENITAL INFECTION
  2. METHYLPREDNISOLONE [Concomitant]

REACTIONS (6)
  - ARTHRALGIA [None]
  - CARDIOGENIC SHOCK [None]
  - CYTOLYTIC HEPATITIS [None]
  - DRUG HYPERSENSITIVITY [None]
  - EOSINOPHILIC MYOCARDITIS [None]
  - OROPHARYNGEAL PAIN [None]
